FAERS Safety Report 7774537-1 (Version None)
Quarter: 2011Q3

REPORT INFORMATION
  Report Type: 
  Country: None (occurrence: None)
  Receive Date: 20110923
  Receipt Date: 20110923
  Transmission Date: 20111222
  Serious: Yes (Hospitalization)
  Sender: FDA-Public Use
  Company Number: None

PATIENT
  Age: 56 Year
  Sex: Female
  Weight: 95.254 kg

DRUGS (2)
  1. CYMBALTA [Suspect]
     Indication: MUSCULOSKELETAL PAIN
     Dosage: 60 MG
     Route: 048
     Dates: start: 20110827, end: 20110907
  2. CYMBALTA [Concomitant]
     Dosage: 60 MG
     Route: 048

REACTIONS (2)
  - HEPATITIS [None]
  - HYPERHIDROSIS [None]
